FAERS Safety Report 12881074 (Version 1)
Quarter: 2016Q4

REPORT INFORMATION
  Report Type: Spontaneous
  Country: US (occurrence: US)
  Receive Date: 20161025
  Receipt Date: 20161025
  Transmission Date: 20170207
  Serious: Yes (Other)
  Sender: FDA-Public Use
  Company Number: None

PATIENT
  Age: 82 Year
  Sex: Female
  Weight: 65.38 kg

DRUGS (14)
  1. CLOPIDOGREL [Concomitant]
     Active Substance: CLOPIDOGREL BISULFATE
  2. ATEROLOL [Concomitant]
  3. FISH OIL [Concomitant]
     Active Substance: FISH OIL
  4. CIPROFLOXACIN HCL TAB (CIPRO) [Suspect]
     Active Substance: CIPROFLOXACIN HYDROCHLORIDE
     Indication: IRRITABLE BOWEL SYNDROME
     Route: 048
     Dates: start: 20160913, end: 20160923
  5. AMLODIPINE/BENAZEPRIL [Concomitant]
     Active Substance: AMLODIPINE BESYLATE\BENAZEPRIL HYDROCHLORIDE
  6. ESTRACE [Concomitant]
     Active Substance: ESTRADIOL
  7. CIPROFLOXACIN HCL TAB (CIPRO) [Suspect]
     Active Substance: CIPROFLOXACIN HYDROCHLORIDE
     Indication: BACTERIAL INFECTION
     Route: 048
     Dates: start: 20160913, end: 20160923
  8. NEXIUM [Concomitant]
     Active Substance: ESOMEPRAZOLE MAGNESIUM
  9. COQ10 [Concomitant]
     Active Substance: UBIDECARENONE
  10. CENTRUM SILVER [Concomitant]
     Active Substance: MINERALS\VITAMINS
  11. SIMVASTATIN. [Concomitant]
     Active Substance: SIMVASTATIN
  12. SACRAFATE [Concomitant]
  13. CULTURELLE [Concomitant]
     Active Substance: LACTOBACILLUS RHAMNOSUS
  14. VITAMIN D3 [Concomitant]
     Active Substance: CHOLECALCIFEROL

REACTIONS (1)
  - Clostridium difficile colitis [None]

NARRATIVE: CASE EVENT DATE: 20160930
